FAERS Safety Report 21967995 (Version 1)
Quarter: 2023Q1

REPORT INFORMATION
  Report Type: Spontaneous
  Country: US (occurrence: US)
  Receive Date: 20230208
  Receipt Date: 20230208
  Transmission Date: 20230418
  Serious: No
  Sender: FDA-Public Use
  Company Number: US-TRAVERE-2022TVT00441

PATIENT
  Age: 3 Month
  Sex: Male

DRUGS (3)
  1. CHOLIC ACID [Suspect]
     Active Substance: CHOLIC ACID
     Indication: Metabolic disorder
     Route: 048
     Dates: start: 20220607
  2. FERROUS SULFATE [Concomitant]
     Active Substance: FERROUS SULFATE
  3. Childrens multi vitamin [Concomitant]

REACTIONS (2)
  - Vomiting [Unknown]
  - Weight decreased [Unknown]
